FAERS Safety Report 5022619-X (Version None)
Quarter: 2006Q2

REPORT INFORMATION
  Report Type: 
  Country: None (occurrence: None)
  Receive Date: 20060605
  Receipt Date: 20060524
  Transmission Date: 20061013
  Serious: Yes (Other)
  Sender: FDA-Public Use
  Company Number: 2006042946

PATIENT
  Sex: Male

DRUGS (2)
  1. ZYVOX [Suspect]
     Indication: ILL-DEFINED DISORDER
  2. DOBUTAMINE CHLORHYDRATE (DOBUTAMINE HYDROCHLORIDE) [Concomitant]

REACTIONS (1)
  - TORSADE DE POINTES [None]
